FAERS Safety Report 14210903 (Version 1)
Quarter: 2017Q4

REPORT INFORMATION
  Report Type: Spontaneous
  Country: CN (occurrence: CN)
  Receive Date: 20171121
  Receipt Date: 20171121
  Transmission Date: 20180321
  Serious: Yes (Other)
  Sender: FDA-Public Use
  Company Number: CN-NOVOPROD-572688

PATIENT
  Age: 20 Year
  Sex: Male
  Weight: 73 kg

DRUGS (1)
  1. NOVORAPID [Suspect]
     Active Substance: INSULIN ASPART
     Indication: TYPE 2 DIABETES MELLITUS
     Dosage: 8U IN THE MORNING, 8U AT NOON AND 9U IN THE EVENING AT A BASAL RATE OF 0.9 U/H
     Route: 058
     Dates: start: 20170806, end: 20170814

REACTIONS (1)
  - Urticaria [Recovered/Resolved]

NARRATIVE: CASE EVENT DATE: 20170814
